FAERS Safety Report 7463877-1 (Version None)
Quarter: 2011Q2

REPORT INFORMATION
  Report Type: 
  Country: None (occurrence: None)
  Receive Date: 20110506
  Receipt Date: 20110429
  Transmission Date: 20111010
  Serious: Yes (Other)
  Sender: FDA-Public Use
  Company Number: US-SANOFI-AVENTIS-2011SA027428

PATIENT
  Age: 73 Year
  Sex: Male

DRUGS (1)
  1. LANTUS [Suspect]
     Indication: TYPE 2 DIABETES MELLITUS
     Dosage: DOSE:40 UNIT(S)
     Route: 058
     Dates: start: 20060101, end: 20110403

REACTIONS (5)
  - MUSCULAR WEAKNESS [None]
  - RASH [None]
  - CONDITION AGGRAVATED [None]
  - RHINORRHOEA [None]
  - AMNESIA [None]
